FAERS Safety Report 15891013 (Version 2)
Quarter: 2019Q1

REPORT INFORMATION
  Report Type: Spontaneous
  Country: US (occurrence: US)
  Receive Date: 20190130
  Receipt Date: 20190329
  Transmission Date: 20190417
  Serious: No
  Sender: FDA-Public Use
  Company Number: US-SA-2019SA024148

PATIENT
  Age: 71 Year
  Sex: Male
  Weight: 120.2 kg

DRUGS (1)
  1. DUPIXENT [Suspect]
     Active Substance: DUPILUMAB
     Indication: DERMATITIS ATOPIC
     Dosage: 300 MG, QOW
     Route: 058
     Dates: start: 2018

REACTIONS (7)
  - Liver function test increased [Unknown]
  - Hepatic enzyme increased [Unknown]
  - Rash papular [Unknown]
  - Blood alkaline phosphatase increased [Unknown]
  - Erythema [Unknown]
  - Swelling [Unknown]
  - Pain [Unknown]

NARRATIVE: CASE EVENT DATE: 201811
